FAERS Safety Report 23224218 (Version 1)
Quarter: 2023Q4

REPORT INFORMATION
  Report Type: Spontaneous
  Country: US (occurrence: US)
  Receive Date: 20231124
  Receipt Date: 20231124
  Transmission Date: 20240110
  Serious: Yes (Life-Threatening, Hospitalization)
  Sender: FDA-Public Use
  Company Number: US-SANDOZ-SDZ2023US057369

PATIENT
  Sex: Male

DRUGS (2)
  1. AMANTADINE [Suspect]
     Active Substance: AMANTADINE
     Indication: Hereditary ataxia
     Dosage: 400 MG, QD
     Route: 065
  2. RILUZOLE [Suspect]
     Active Substance: RILUZOLE
     Indication: Hereditary ataxia
     Dosage: 100 MG, QD
     Route: 065

REACTIONS (1)
  - Drug withdrawal syndrome [Unknown]
